FAERS Safety Report 24825435 (Version 1)
Quarter: 2025Q1

REPORT INFORMATION
  Report Type: Spontaneous
  Country: ES (occurrence: ES)
  Receive Date: 20250109
  Receipt Date: 20250109
  Transmission Date: 20250409
  Serious: Yes (Other)
  Sender: SAMSUNG BIOEPIS
  Company Number: None

PATIENT
  Age: 69 Year
  Sex: Male
  Weight: 91 kg

DRUGS (1)
  1. INFLIXIMAB [Suspect]
     Active Substance: INFLIXIMAB
     Indication: Crohn^s disease
     Route: 042
     Dates: start: 20211001, end: 20241028

REACTIONS (2)
  - Hyperhidrosis [Recovered/Resolved]
  - Urticaria [Recovered/Resolved]

NARRATIVE: CASE EVENT DATE: 20241028
